FAERS Safety Report 24291961 (Version 1)
Quarter: 2024Q3

REPORT INFORMATION
  Report Type: Spontaneous
  Country: CN (occurrence: CN)
  Receive Date: 20240906
  Receipt Date: 20240906
  Transmission Date: 20241017
  Serious: Yes (Other)
  Sender: ROCHE
  Company Number: CN-ROCHE-10000070448

PATIENT
  Age: 12 Year
  Sex: Male
  Weight: 50 kg

DRUGS (6)
  1. EMICIZUMAB [Suspect]
     Active Substance: EMICIZUMAB
     Indication: Factor VIII deficiency
     Dosage: 2 VIALS EACH TIME, 4 TIME.
     Route: 065
     Dates: start: 20231201
  2. EMICIZUMAB [Suspect]
     Active Substance: EMICIZUMAB
     Route: 065
     Dates: start: 202401
  3. EMICIZUMAB [Suspect]
     Active Substance: EMICIZUMAB
     Route: 065
     Dates: start: 202402
  4. EMICIZUMAB [Suspect]
     Active Substance: EMICIZUMAB
     Route: 065
     Dates: start: 20240301
  5. Coagulation Factor [Concomitant]
     Indication: Prophylaxis
  6. Recombinant Coagulation Factor ? [Concomitant]
     Indication: Factor VIII deficiency

REACTIONS (16)
  - Pyrexia [Recovering/Resolving]
  - Asthenia [Recovering/Resolving]
  - Dizziness [Recovering/Resolving]
  - Decreased appetite [Recovering/Resolving]
  - Nasal obstruction [Recovering/Resolving]
  - Diarrhoea [Recovering/Resolving]
  - Gait inability [Recovering/Resolving]
  - Yellow skin [Recovering/Resolving]
  - Dark circles under eyes [Recovering/Resolving]
  - Shock [Recovering/Resolving]
  - Gastroenteritis viral [Recovering/Resolving]
  - Blepharitis [Recovering/Resolving]
  - Headache [Recovering/Resolving]
  - Nausea [Recovering/Resolving]
  - Viral infection [Recovering/Resolving]
  - Decreased immune responsiveness [Not Recovered/Not Resolved]

NARRATIVE: CASE EVENT DATE: 20240320
